FAERS Safety Report 17042335 (Version 2)
Quarter: 2019Q4

REPORT INFORMATION
  Report Type: Spontaneous
  Country: GB (occurrence: GB)
  Receive Date: 20191118
  Receipt Date: 20191120
  Transmission Date: 20200122
  Serious: Yes (Life-Threatening, Hospitalization)
  Sender: FDA-Public Use
  Company Number: GB-DEXPHARM-20191018

PATIENT
  Age: 73 Year
  Sex: Female
  Weight: 72 kg

DRUGS (23)
  1. MORPHINE [Suspect]
     Active Substance: MORPHINE
     Dates: start: 20180725
  2. TRAMADOL. [Suspect]
     Active Substance: TRAMADOL
     Indication: ABDOMINAL PAIN LOWER
     Dosage: AS NECESSARY
     Route: 048
  3. FOLIC ACID. [Concomitant]
     Active Substance: FOLIC ACID
  4. RAMIPRIL. [Concomitant]
     Active Substance: RAMIPRIL
  5. PIZOTIFEN [Suspect]
     Active Substance: PIZOTYLINE
     Indication: MIGRAINE
     Dosage: AT NIGHT
     Route: 048
  6. ONDANSETRON HYDROCHLORIDE. [Suspect]
     Active Substance: ONDANSETRON HYDROCHLORIDE
     Indication: PROCEDURAL NAUSEA
     Route: 042
     Dates: start: 20180725
  7. AZITHROMYCIN ANHYDROUS. [Concomitant]
     Active Substance: AZITHROMYCIN ANHYDROUS
     Dosage: AT NIGHT
  8. SUGAMMADEX [Suspect]
     Active Substance: SUGAMMADEX
     Dates: start: 20180725
  9. FELODIPINE. [Concomitant]
     Active Substance: FELODIPINE
  10. ROCURONIUM [Suspect]
     Active Substance: ROCURONIUM BROMIDE
     Indication: INDUCTION OF ANAESTHESIA
     Dates: start: 20180725
  11. SERTRALINE HYDROCHLORIDE. [Suspect]
     Active Substance: SERTRALINE HYDROCHLORIDE
     Indication: DEPRESSION
     Route: 048
  12. METHYLTHIONINIUM CHLORIDE [Suspect]
     Active Substance: METHYLENE BLUE
     Indication: PARATHYROIDECTOMY
     Route: 042
     Dates: start: 20180725, end: 20180725
  13. FENTANYL. [Suspect]
     Active Substance: FENTANYL
     Indication: ANAESTHETIC PREMEDICATION
     Route: 042
     Dates: start: 20180725
  14. DOXAZOSIN [Concomitant]
     Active Substance: DOXAZOSIN MESYLATE
  15. CHLORDIAZEPOXIDE. [Concomitant]
     Active Substance: CHLORDIAZEPOXIDE
     Dosage: AT NIGHT
  16. SUMATRIPTAN. [Suspect]
     Active Substance: SUMATRIPTAN
     Indication: MIGRAINE
     Dosage: AS NECESSARY
     Route: 048
  17. OMEPRAZOLE. [Concomitant]
     Active Substance: OMEPRAZOLE
  18. PROPOFOL. [Suspect]
     Active Substance: PROPOFOL
     Indication: INDUCTION OF ANAESTHESIA
     Dates: start: 20180725
  19. ATENOLOL. [Concomitant]
     Active Substance: ATENOLOL
  20. DEXAMETHASONE. [Suspect]
     Active Substance: DEXAMETHASONE
     Dates: start: 20180725
  21. LEVOTHYROXINE. [Concomitant]
     Active Substance: LEVOTHYROXINE
  22. REMIFENTANIL HYDROCHLORIDE. [Suspect]
     Active Substance: REMIFENTANIL HYDROCHLORIDE
     Indication: MAINTENANCE OF ANAESTHESIA
     Route: 042
     Dates: start: 20180725
  23. SIMVASTATIN. [Concomitant]
     Active Substance: SIMVASTATIN
     Dosage: AT NIGHT

REACTIONS (1)
  - Serotonin syndrome [Recovering/Resolving]

NARRATIVE: CASE EVENT DATE: 20180725
